FAERS Safety Report 4604455-9 (Version None)
Quarter: 2005Q2

REPORT INFORMATION
  Report Type: 
  Country: None (occurrence: None)
  Receive Date: 20050223
  Receipt Date: 20050106
  Transmission Date: 20051028
  Serious: No
  Sender: FDA-Public Use
  Company Number: PHEH2005US00554

PATIENT
  Age: 74 Year
  Sex: Female

DRUGS (7)
  1. ZELNORM [Suspect]
     Indication: CONSTIPATION
     Dosage: 6 MG QD, ORAL
     Route: 048
     Dates: start: 20041231
  2. SYNTHROID [Concomitant]
  3. NEXIUM [Concomitant]
  4. LIPITOR [Concomitant]
  5. CARDIZEM [Concomitant]
  6. POTASSIUM ACETATE [Concomitant]
  7. TOPROL-XL [Concomitant]

REACTIONS (2)
  - PYREXIA [None]
  - RASH MACULAR [None]
